FAERS Safety Report 25584718 (Version 2)
Quarter: 2025Q3

REPORT INFORMATION
  Report Type: Spontaneous
  Country: RU (occurrence: RU)
  Receive Date: 20250721
  Receipt Date: 20250725
  Transmission Date: 20251021
  Serious: Yes (Hospitalization)
  Sender: SUNOVION
  Company Number: RU-ACRAF-2025-038444

PATIENT

DRUGS (3)
  1. LATUDA [Suspect]
     Active Substance: LURASIDONE HYDROCHLORIDE
     Indication: Delusion of reference
     Dosage: 80.0 MILLIGRAM(S) (40 MILLIGRAM(S), 2 IN 1 DAY)
     Route: 048
     Dates: start: 202502, end: 202504
  2. HALOPERIDOL [Suspect]
     Active Substance: HALOPERIDOL
     Indication: Delusion of reference
     Dosage: 45.0 MILLIGRAM(S) (15 MILLIGRAM(S), 3 IN 1 DAY)
     Route: 048
     Dates: end: 202504
  3. OLANZAPINE [Suspect]
     Active Substance: OLANZAPINE
     Indication: Delusion of reference
     Dosage: 20.0 MILLIGRAM(S) (10 MILLIGRAM(S), 2 IN 1 DAY)
     Route: 048
     Dates: start: 202504, end: 202505

REACTIONS (2)
  - Drug ineffective [Recovering/Resolving]
  - No adverse event [Recovered/Resolved]
